FAERS Safety Report 8159422-8 (Version None)
Quarter: 2012Q1

REPORT INFORMATION
  Report Type: 
  Country: None (occurrence: None)
  Receive Date: 20120223
  Receipt Date: 20120215
  Transmission Date: 20120608
  Serious: Yes (Other)
  Sender: FDA-Public Use
  Company Number: JP-PFIZER INC-2012040177

PATIENT
  Age: 18 Year
  Sex: Female

DRUGS (62)
  1. SERTRALINE HYDROCHLORIDE [Suspect]
     Indication: SELF INJURIOUS BEHAVIOUR
  2. LORAZEPAM [Suspect]
     Indication: FEELING ABNORMAL
  3. RISPERIDONE [Suspect]
     Indication: FEELING ABNORMAL
  4. RISPERIDONE [Suspect]
     Indication: ANXIETY
  5. QUETIAPINE FUMARATE [Suspect]
     Indication: FEELING ABNORMAL
  6. OLANZAPINE [Suspect]
     Indication: DEPRESSION
     Dosage: 5 MG, 1X/DAY
  7. ZOLPIDEM TARTRATE [Suspect]
     Indication: ANXIETY
  8. PURSENNIDE [Suspect]
     Indication: CONSTIPATION
     Dosage: 2 DF, 1X/DAY
  9. SERTRALINE HYDROCHLORIDE [Suspect]
     Indication: DEPRESSION
     Dosage: 50 MG, 2X/DAY
  10. SERTRALINE HYDROCHLORIDE [Suspect]
     Indication: ANXIETY
  11. RISPERIDONE [Suspect]
     Indication: FRUSTRATION
  12. ZOLPIDEM TARTRATE [Suspect]
     Indication: SELF INJURIOUS BEHAVIOUR
  13. BROMAZEPAM [Suspect]
     Indication: DEPRESSION
     Dosage: 6 MG, UNK
  14. BROMAZEPAM [Suspect]
     Indication: SELF INJURIOUS BEHAVIOUR
  15. FLUNITRAZEPAM [Suspect]
     Indication: FEELING ABNORMAL
  16. FLUNITRAZEPAM [Suspect]
     Indication: INSOMNIA
  17. FLUNITRAZEPAM [Suspect]
     Indication: SELF INJURIOUS BEHAVIOUR
  18. MOSAPRIDE [Suspect]
     Indication: SELF INJURIOUS BEHAVIOUR
  19. SERTRALINE HYDROCHLORIDE [Suspect]
     Indication: INSOMNIA
  20. QUETIAPINE FUMARATE [Suspect]
     Indication: INSOMNIA
  21. OLANZAPINE [Suspect]
     Indication: ANXIETY
  22. OLANZAPINE [Suspect]
     Indication: INSOMNIA
  23. BROTIZOLAM [Suspect]
     Indication: INSOMNIA
  24. FLUNITRAZEPAM [Suspect]
     Indication: FRUSTRATION
  25. SERTRALINE HYDROCHLORIDE [Suspect]
     Indication: FEELING ABNORMAL
  26. LORAZEPAM [Suspect]
     Indication: ANXIETY
  27. LORAZEPAM [Suspect]
     Indication: INSOMNIA
  28. OLANZAPINE [Suspect]
     Indication: FRUSTRATION
  29. OLANZAPINE [Suspect]
     Indication: SELF INJURIOUS BEHAVIOUR
  30. ZOLPIDEM TARTRATE [Suspect]
     Indication: DEPRESSION
     Dosage: 10 MG, UNK
  31. BROTIZOLAM [Suspect]
     Indication: DEPRESSION
     Dosage: 0.25 MG, UNK
  32. FLUNITRAZEPAM [Suspect]
     Indication: ANXIETY
  33. BROMAZEPAM [Suspect]
     Indication: FEELING ABNORMAL
  34. BROMAZEPAM [Suspect]
     Indication: INSOMNIA
  35. MOSAPRIDE [Suspect]
     Indication: DEPRESSION
     Dosage: 15 MG, 3X/DAY
  36. QUETIAPINE FUMARATE [Suspect]
     Indication: FRUSTRATION
  37. ZOLPIDEM TARTRATE [Suspect]
     Indication: FEELING ABNORMAL
  38. ZOLPIDEM TARTRATE [Suspect]
     Indication: FRUSTRATION
  39. BROTIZOLAM [Suspect]
     Indication: SELF INJURIOUS BEHAVIOUR
  40. BROMAZEPAM [Suspect]
     Indication: ANXIETY
  41. BROMAZEPAM [Suspect]
     Indication: FRUSTRATION
  42. MOSAPRIDE [Suspect]
     Indication: FEELING ABNORMAL
  43. LORAZEPAM [Suspect]
     Indication: FRUSTRATION
  44. LORAZEPAM [Suspect]
     Indication: SELF INJURIOUS BEHAVIOUR
  45. RISPERIDONE [Suspect]
     Indication: DEPRESSION
     Dosage: 1 MG, 1X/DAY
  46. RISPERIDONE [Suspect]
     Indication: SELF INJURIOUS BEHAVIOUR
  47. QUETIAPINE FUMARATE [Suspect]
     Indication: DEPRESSION
     Dosage: 75 MG, 3X/DAY
  48. QUETIAPINE FUMARATE [Suspect]
     Indication: ANXIETY
  49. OLANZAPINE [Suspect]
     Indication: FEELING ABNORMAL
  50. ZOLPIDEM TARTRATE [Suspect]
     Indication: INSOMNIA
  51. BROTIZOLAM [Suspect]
     Indication: ANXIETY
  52. FLUNITRAZEPAM [Suspect]
     Indication: DEPRESSION
     Dosage: 1 MG, UNK
  53. MOSAPRIDE [Suspect]
     Indication: ANXIETY
  54. MOSAPRIDE [Suspect]
     Indication: FRUSTRATION
  55. SERTRALINE HYDROCHLORIDE [Suspect]
     Indication: FRUSTRATION
  56. LORAZEPAM [Suspect]
     Indication: DEPRESSION
     Dosage: 1.5 MG, 3X/DAY
  57. RISPERIDONE [Suspect]
     Indication: INSOMNIA
  58. QUETIAPINE FUMARATE [Suspect]
     Indication: SELF INJURIOUS BEHAVIOUR
  59. BROTIZOLAM [Suspect]
     Indication: FEELING ABNORMAL
  60. BROTIZOLAM [Suspect]
     Indication: FRUSTRATION
  61. MOSAPRIDE [Suspect]
     Indication: INSOMNIA
  62. PURSENNIDE [Suspect]
     Indication: FLATULENCE

REACTIONS (6)
  - WEIGHT INCREASED [None]
  - HYPERPHAGIA [None]
  - OVERDOSE [None]
  - THERAPEUTIC RESPONSE DECREASED [None]
  - FLATULENCE [None]
  - CONSTIPATION [None]
